FAERS Safety Report 7941628-1 (Version None)
Quarter: 2011Q4

REPORT INFORMATION
  Report Type: 
  Country: None (occurrence: None)
  Receive Date: 20111128
  Receipt Date: 20110929
  Transmission Date: 20120403
  Serious: No
  Sender: FDA-Public Use
  Company Number: US-BAYER-2011-094391

PATIENT
  Sex: Female

DRUGS (1)
  1. ALEVE (CAPLET) [Suspect]
     Indication: LIGAMENT SPRAIN
     Dosage: UNK
     Route: 048
     Dates: start: 20110920, end: 20110928

REACTIONS (5)
  - MUSCULOSKELETAL DISCOMFORT [None]
  - INSOMNIA [None]
  - ERUCTATION [None]
  - CHEST DISCOMFORT [None]
  - DYSPEPSIA [None]
